FAERS Safety Report 16872445 (Version 2)
Quarter: 2019Q4

REPORT INFORMATION
  Report Type: Spontaneous
  Country: JP (occurrence: JP)
  Receive Date: 20191001
  Receipt Date: 20191031
  Transmission Date: 20200122
  Serious: Yes (Hospitalization)
  Sender: FDA-Public Use
  Company Number: JP-SA-2019SA267515

PATIENT
  Age: 81 Year
  Sex: Male
  Weight: 53 kg

DRUGS (9)
  1. ELPLAT [Suspect]
     Active Substance: OXALIPLATIN
     Indication: COLON CANCER
     Dosage: 150 MG, Q3W
     Route: 041
     Dates: start: 20190830, end: 20190830
  2. CAPECITABINE. [Suspect]
     Active Substance: CAPECITABINE
     Indication: COLON CANCER
     Dosage: 1200 MG, BID
     Route: 048
     Dates: start: 20190830, end: 20190910
  3. ALOXI [Concomitant]
     Active Substance: PALONOSETRON HYDROCHLORIDE
     Dosage: UNK
     Dates: start: 20190830, end: 20190830
  4. DECADRON [Concomitant]
     Active Substance: DEXAMETHASONE
     Dosage: UNK
     Route: 048
     Dates: start: 20190831, end: 20190902
  5. PYDOXAL [Concomitant]
     Active Substance: PYRIDOXAL
     Dosage: UNK
     Route: 048
     Dates: start: 20190830, end: 20190910
  6. AMLODIPINE (ALS BESILAAT) SANDOZ [Concomitant]
     Dosage: UNK
     Route: 048
     Dates: start: 20190720
  7. BAYASPIRIN [Concomitant]
     Active Substance: ASPIRIN
     Dosage: UNK
     Route: 048
     Dates: start: 20190720
  8. GASTER [Concomitant]
     Active Substance: FAMOTIDINE
     Dosage: UNK
     Dates: start: 20190830, end: 20190830
  9. DECADRON [DEXAMETHASONE SODIUM PHOSPHATE] [Concomitant]
     Dosage: UNK
     Dates: start: 20180830, end: 20190830

REACTIONS (3)
  - Ileus [Recovering/Resolving]
  - Anastomotic ulcer [Recovering/Resolving]
  - Anastomotic stenosis [Recovering/Resolving]

NARRATIVE: CASE EVENT DATE: 20190910
